FAERS Safety Report 5992453-2 (Version None)
Quarter: 2008Q4

REPORT INFORMATION
  Report Type: 
  Country: None (occurrence: None)
  Receive Date: 20081211
  Receipt Date: 20080516
  Transmission Date: 20090506
  Serious: No
  Sender: FDA-Public Use
  Company Number: US-AMGEN-KDL280338

PATIENT
  Sex: Female

DRUGS (4)
  1. ENBREL [Suspect]
     Indication: RHEUMATOID ARTHRITIS
     Route: 058
     Dates: start: 20060110
  2. METHOTREXATE [Concomitant]
     Route: 048
     Dates: start: 20080512
  3. CODEINE SUL TAB [Concomitant]
  4. ADVIL LIQUI-GELS [Concomitant]

REACTIONS (5)
  - BLOOD PRESSURE INCREASED [None]
  - DIARRHOEA [None]
  - FATIGUE [None]
  - RHEUMATOID ARTHRITIS [None]
  - VOMITING [None]
